FAERS Safety Report 17446001 (Version 1)
Quarter: 2020Q1

REPORT INFORMATION
  Report Type: Spontaneous
  Country: GB (occurrence: GB)
  Receive Date: 20200221
  Receipt Date: 20200221
  Transmission Date: 20200409
  Serious: Yes (Hospitalization, Other)
  Sender: FDA-Public Use
  Company Number: GB-BIOGEN-2020BI00838598

PATIENT
  Age: 34 Year
  Sex: Female

DRUGS (3)
  1. TYSABRI [Suspect]
     Active Substance: NATALIZUMAB
     Indication: MULTIPLE SCLEROSIS
     Route: 065
  2. METHYLPREDNISOLONE. [Suspect]
     Active Substance: METHYLPREDNISOLONE
     Indication: ALANINE AMINOTRANSFERASE INCREASED
     Route: 042
  3. METFORMIN [Concomitant]
     Active Substance: METFORMIN HYDROCHLORIDE
     Indication: PRODUCT USED FOR UNKNOWN INDICATION
     Route: 065

REACTIONS (6)
  - Alanine aminotransferase increased [Not Recovered/Not Resolved]
  - Smooth muscle antibody positive [Unknown]
  - Autoimmune hepatitis [Unknown]
  - Drug-induced liver injury [Unknown]
  - Blood glucose increased [Unknown]
  - Nausea [Unknown]

NARRATIVE: CASE EVENT DATE: 20200122
